FAERS Safety Report 9830229 (Version 3)
Quarter: 2014Q1

REPORT INFORMATION
  Report Type: Report from Study
  Country: US (occurrence: US)
  Receive Date: 20140120
  Receipt Date: 20140129
  Transmission Date: 20141002
  Serious: Yes (Hospitalization)
  Sender: FDA-Public Use
  Company Number: US-ACTELION-A-NJ2013-92486

PATIENT
  Age: 52 Year
  Sex: Male

DRUGS (4)
  1. VELETRI [Suspect]
     Indication: PULMONARY ARTERIAL HYPERTENSION
     Dosage: 45 NG/KG, PER MIN
     Route: 042
     Dates: start: 20110701
  2. LETAIRIS [Concomitant]
  3. SILDENAFIL [Concomitant]
  4. COUMADIN [Concomitant]

REACTIONS (13)
  - Renal failure [Recovering/Resolving]
  - Dysuria [Recovering/Resolving]
  - Laceration [Recovering/Resolving]
  - Transfusion [Recovering/Resolving]
  - Urinary tract infection [Recovering/Resolving]
  - Haemorrhage [Recovering/Resolving]
  - Pulmonary arterial hypertension [Recovering/Resolving]
  - Localised oedema [Recovering/Resolving]
  - Fluid retention [Recovering/Resolving]
  - Dyspnoea [Recovering/Resolving]
  - Loss of consciousness [Recovering/Resolving]
  - Fall [Recovering/Resolving]
  - Pneumonia [Unknown]
